FAERS Safety Report 24623644 (Version 2)
Quarter: 2025Q3

REPORT INFORMATION
  Report Type: Spontaneous
  Country: US (occurrence: US)
  Receive Date: 20241115
  Receipt Date: 20250810
  Transmission Date: 20251021
  Serious: No
  Sender: ALEXION PHARMACEUTICALS
  Company Number: US-AstraZeneca-CH-00720312A

PATIENT
  Sex: Male

DRUGS (1)
  1. BEVESPI AEROSPHERE [Suspect]
     Active Substance: FORMOTEROL FUMARATE\GLYCOPYRROLATE

REACTIONS (8)
  - Dyspnoea [Unknown]
  - Influenza [Unknown]
  - Diarrhoea [Unknown]
  - Headache [Unknown]
  - Hyperhidrosis [Unknown]
  - Apathy [Unknown]
  - Decreased appetite [Unknown]
  - Productive cough [Unknown]
